FAERS Safety Report 10450861 (Version 20)
Quarter: 2017Q1

REPORT INFORMATION
  Report Type: Report from Study
  Country: AU (occurrence: AU)
  Receive Date: 20140912
  Receipt Date: 20170127
  Transmission Date: 20170428
  Serious: Yes (Hospitalization, Disabling)
  Sender: FDA-Public Use
  Company Number: AU-B.I. PHARMACEUTICALS,INC./RIDGEFIELD-2014-BI-32991BI

PATIENT
  Age: 64 Year
  Sex: Male
  Weight: 115 kg

DRUGS (25)
  1. BI 1356 [Suspect]
     Active Substance: LINAGLIPTIN
     Indication: TYPE 2 DIABETES MELLITUS
     Route: 048
     Dates: end: 20140716
  2. LIPITOR [Concomitant]
     Active Substance: ATORVASTATIN CALCIUM
     Indication: HYPERLIPIDAEMIA
     Route: 048
     Dates: start: 2006
  3. METFORMIN [Concomitant]
     Active Substance: METFORMIN HYDROCHLORIDE
     Indication: TYPE 2 DIABETES MELLITUS
     Dosage: DOSE PER APPLICATION AND DAILY DOSE: 1500
     Route: 048
     Dates: start: 20120516, end: 20140710
  4. PLAVIX [Concomitant]
     Active Substance: CLOPIDOGREL BISULFATE
     Indication: CEREBROVASCULAR ACCIDENT
     Route: 048
     Dates: start: 2007, end: 20151109
  5. STEMITIL [Concomitant]
     Indication: IMPAIRED GASTRIC EMPTYING
     Route: 048
     Dates: start: 2007
  6. DUCUSATE SENNA [Concomitant]
     Indication: GASTROINTESTINAL MOTILITY DISORDER
     Dosage: DOSE PER APPLICATION AND DAILY DOSE: 50MG/8MG
     Route: 048
     Dates: start: 20120626
  7. LANTUS [Concomitant]
     Active Substance: INSULIN GLARGINE
     Dosage: DOSE PER APPLICATION AND DAILY DOSE: 22 U/S
     Route: 058
     Dates: start: 20150227
  8. ASPIRIN. [Concomitant]
     Active Substance: ASPIRIN
     Indication: CORONARY ARTERY DISEASE
     Route: 048
     Dates: start: 20120516
  9. OMEPRAZOLE 9A [Concomitant]
     Indication: GASTROOESOPHAGEAL REFLUX PROPHYLAXIS
     Route: 048
     Dates: start: 20120911
  10. LASIX [Concomitant]
     Active Substance: FUROSEMIDE
     Indication: CARDIAC FAILURE CONGESTIVE
     Dosage: DOSE CHANGE
     Route: 048
     Dates: start: 20120628, end: 20140710
  11. PARACETAMOL [Concomitant]
     Active Substance: ACETAMINOPHEN
     Indication: PAIN
     Dosage: DAILY DOSE: 1000 MG PRN
     Route: 048
     Dates: start: 20120624
  12. MOTILIUM [Concomitant]
     Active Substance: DOMPERIDONE
     Indication: IMPAIRED GASTRIC EMPTYING
     Dosage: DAILY DOSE: 10 MG PRN
     Route: 048
     Dates: start: 201001
  13. LANTUS [Concomitant]
     Active Substance: INSULIN GLARGINE
     Indication: TYPE 2 DIABETES MELLITUS
     Dosage: DOSE PER APPLICATION AND DAILY DOSE: 20 U/S TO 50U/S
     Route: 058
     Dates: start: 20150218
  14. DUTASTERIDE. [Concomitant]
     Active Substance: DUTASTERIDE
     Indication: BLADDER SPASM
     Route: 048
     Dates: start: 20151207
  15. VITAMINERUM [Concomitant]
     Indication: SUPPLEMENTATION THERAPY
     Dosage: DAILY DOSE: T
     Route: 048
     Dates: start: 2001
  16. RAMIPRIL. [Concomitant]
     Active Substance: RAMIPRIL
     Indication: HYPERTENSION
     Route: 048
     Dates: start: 20120516, end: 20140710
  17. AMIODARONE [Concomitant]
     Active Substance: AMIODARONE
     Indication: ATRIAL FIBRILLATION
     Route: 048
     Dates: start: 20120629
  18. LANTUS [Concomitant]
     Active Substance: INSULIN GLARGINE
     Dosage: DOSE PER APPLICATION AND DAILY DOSE: 24 U/S
     Route: 058
     Dates: start: 20150210
  19. DUTASTERIDE. [Concomitant]
     Active Substance: DUTASTERIDE
     Indication: PROSTATOMEGALY
  20. BETAMIN [Concomitant]
     Indication: ANAEMIA
     Route: 048
     Dates: start: 201110
  21. RAMIPRIL. [Concomitant]
     Active Substance: RAMIPRIL
     Route: 048
     Dates: start: 20151110
  22. PARACETAMOL [Concomitant]
     Active Substance: ACETAMINOPHEN
     Dosage: DOSE PER APP AND DAILY DOSE: 3000
     Route: 048
     Dates: start: 20160406
  23. LANTUS [Concomitant]
     Active Substance: INSULIN GLARGINE
     Dosage: STRENGTH: 20 U/S TO 50 U/S, DOSE PER APPLICATION AND DAILY DOSE: UPTITRATION
     Route: 058
  24. LANTUS [Concomitant]
     Active Substance: INSULIN GLARGINE
     Dosage: DOSE PER APPLICATION AND DAILY DOSE: 50 U/S
     Route: 058
     Dates: start: 20150713
  25. LANTUS [Concomitant]
     Active Substance: INSULIN GLARGINE
     Dosage: DOSE PER APPLICATION AND DAILY DOSE: 30 U/S
     Route: 058
     Dates: start: 201503

REACTIONS (18)
  - Chronic kidney disease [Recovered/Resolved]
  - Gastroenteritis [Recovered/Resolved]
  - Homeless [Recovered/Resolved]
  - Anaemia [Recovered/Resolved]
  - Encopresis [Recovered/Resolved]
  - Chest pain [Recovered/Resolved]
  - Colonoscopy [Recovered/Resolved]
  - Drug withdrawal maintenance therapy [Recovered/Resolved]
  - Chest pain [Recovered/Resolved]
  - Malaise [Recovered/Resolved]
  - Acute kidney injury [Recovered/Resolved]
  - Endoscopy upper gastrointestinal tract [Recovered/Resolved]
  - Cellulitis [Not Recovered/Not Resolved]
  - Activities of daily living impaired [Recovered/Resolved]
  - Acute kidney injury [Recovered/Resolved]
  - Cough [Recovered/Resolved]
  - Colonoscopy [Recovered/Resolved]
  - Endoscopy upper gastrointestinal tract [Recovered/Resolved]

NARRATIVE: CASE EVENT DATE: 20140707
